FAERS Safety Report 23351903 (Version 1)
Quarter: 2023Q4

REPORT INFORMATION
  Report Type: Spontaneous
  Country: FR (occurrence: FR)
  Receive Date: 20231229
  Receipt Date: 20231229
  Transmission Date: 20240110
  Serious: Yes (Hospitalization)
  Sender: FDA-Public Use
  Company Number: None

PATIENT
  Age: 71 Year
  Sex: Female
  Weight: 98 kg

DRUGS (9)
  1. METFORMIN [Suspect]
     Active Substance: METFORMIN HYDROCHLORIDE
     Indication: Type 2 diabetes mellitus
     Dosage: 2000 MILLIGRAM, QD, 1-0-1
     Route: 048
     Dates: end: 20220812
  2. CANDESARTAN [Suspect]
     Active Substance: CANDESARTAN
     Indication: Product used for unknown indication
     Dosage: 8 MILLIGRAM, QD, 1-0-0
     Route: 048
     Dates: end: 20220812
  3. PANTOPRAZOLE [Concomitant]
     Active Substance: PANTOPRAZOLE
     Dosage: 40 MILLIGRAM, QD, 0-0-1
     Route: 048
  4. KARDEGIC [Concomitant]
     Active Substance: ASPIRIN DL-LYSINE
     Dosage: 75 MILLIGRAM, QD, 0-1-0
     Route: 048
  5. ALPRAZOLAM [Concomitant]
     Active Substance: ALPRAZOLAM
     Dosage: 0.25 MILLIGRAM, QD, 0-0-1
     Route: 048
  6. TAHOR [Concomitant]
     Active Substance: ATORVASTATIN CALCIUM
     Dosage: 40 MILLIGRAM, QD 0-0-1
     Route: 048
  7. ESCITALOPRAM [Concomitant]
     Active Substance: ESCITALOPRAM OXALATE
     Dosage: 5 MILLIGRAM, QD, 1-0-0
     Route: 048
  8. TRULICITY [Concomitant]
     Active Substance: DULAGLUTIDE
     Indication: Type 2 diabetes mellitus
     Dosage: 1.5 MILLIGRAM, QW,  1 TIME A WEEK
     Route: 058
  9. LEVOTHYROXINE [Concomitant]
     Active Substance: LEVOTHYROXINE
     Dosage: 150 MICROGRAM, QD, 1-0-0
     Route: 048

REACTIONS (2)
  - Hypomagnesaemia [Unknown]
  - Lactic acidosis [Recovered/Resolved]

NARRATIVE: CASE EVENT DATE: 20220812
